FAERS Safety Report 9741901 (Version 2)
Quarter: 2013Q4

REPORT INFORMATION
  Report Type: Report from Study
  Country: AR (occurrence: AR)
  Receive Date: 20131210
  Receipt Date: 20131225
  Transmission Date: 20140711
  Serious: Yes (Other)
  Sender: FDA-Public Use
  Company Number: AR-ROCHE-1314810

PATIENT
  Age: 66 Year
  Sex: Female

DRUGS (1)
  1. RANIBIZUMAB [Suspect]
     Indication: PRODUCT USED FOR UNKNOWN INDICATION
     Route: 050
     Dates: start: 2012

REACTIONS (5)
  - Conjunctivitis [Unknown]
  - Drug ineffective [Unknown]
  - Eye injury [Unknown]
  - Eye pain [Unknown]
  - Eye irritation [Unknown]
